FAERS Safety Report 25882170 (Version 1)
Quarter: 2025Q4

REPORT INFORMATION
  Report Type: Spontaneous
  Country: CN (occurrence: CN)
  Receive Date: 20251006
  Receipt Date: 20251006
  Transmission Date: 20260118
  Serious: Yes (Hospitalization, Other)
  Sender: AMNEAL
  Company Number: CN-AMNEAL PHARMACEUTICALS-2025-AMRX-03787

PATIENT
  Age: 58 Year
  Sex: Female

DRUGS (3)
  1. ZOLEDRONIC ACID [Suspect]
     Active Substance: ZOLEDRONIC ACID
     Indication: Osteoporosis
     Dosage: 5 MILLIGRAM INTRAVENOUS INFUSION
     Route: 042
     Dates: start: 20250823
  2. THALIDOMIDE [Suspect]
     Active Substance: THALIDOMIDE
     Indication: Behcet^s syndrome
     Dosage: 25 MILLIGRAM, 3 /DAY
     Route: 048
  3. PREDNISONE ACETATE [Suspect]
     Active Substance: PREDNISONE ACETATE
     Indication: Product used for unknown indication
     Dosage: 40MG, QD (DOSE REDUCTION 10MG EVERY 3 DAYS UNTIL DRUG  WITHDRAWAL)
     Route: 048

REACTIONS (4)
  - Sepsis [Recovered/Resolved]
  - Septic shock [Recovering/Resolving]
  - Gastrointestinal infection [Recovering/Resolving]
  - Acute kidney injury [Recovering/Resolving]
